FAERS Safety Report 8348173 (Version 4)
Quarter: 2014Q4

REPORT INFORMATION
  Report Type: Spontaneous
  Country: FR (occurrence: FR)
  Receive Date: 20120123
  Receipt Date: 20141117
  Transmission Date: 20150529
  Serious: Yes (Death, Life-Threatening, Hospitalization, Other)
  Sender: FDA-Public Use
  Company Number: FR-AMGEN-FRASP2012003760

PATIENT
  Age: 45 Year
  Sex: Male
  Weight: 102 kg

DRUGS (8)
  1. NSAID^S [Concomitant]
     Active Substance: UNSPECIFIED INGREDIENT
     Dosage: UNK
  2. CYTARABINE. [Concomitant]
     Active Substance: CYTARABINE
     Dosage: 1000 MG/M2, BID, ON DAYS 17-19
  3. ARACYTINE [Concomitant]
     Active Substance: CYTARABINE
     Indication: ACUTE MYELOID LEUKAEMIA
     Dosage: 200 MG/M2, UNK
     Route: 042
  4. NEULASTA [Suspect]
     Active Substance: PEGFILGRASTIM
     Indication: NEUTROPENIA
     Dosage: 6 MG, ONE TIME DOSE
     Route: 058
     Dates: start: 20111201, end: 20111201
  5. PERFALGAN [Concomitant]
     Active Substance: ACETAMINOPHEN
     Dosage: 500 MG, QID
  6. CYTARABINE. [Concomitant]
     Active Substance: CYTARABINE
     Indication: ACUTE MYELOID LEUKAEMIA
     Dosage: 200 MG/M2, DAYS 1-7
  7. DAUNORUBICINE [Concomitant]
     Active Substance: DAUNORUBICIN
     Indication: ACUTE MYELOID LEUKAEMIA
     Dosage: 60 MG/M2, DAY 1-3
     Dates: start: 20111112
  8. DAUNORUBICINE [Concomitant]
     Active Substance: DAUNORUBICIN
     Dosage: 35 MG/M2, ON DAYS 17-18

REACTIONS (12)
  - Pneumonia [Unknown]
  - Disseminated intravascular coagulation [Unknown]
  - Blast cell crisis [Fatal]
  - Thrombocytopenia [Unknown]
  - Cardiomegaly [Unknown]
  - Abdominal distension [Unknown]
  - Cerebral haemorrhage [Unknown]
  - Cardiac arrest [Recovered/Resolved]
  - Pleural effusion [Unknown]
  - White blood cell count increased [Unknown]
  - Headache [Unknown]
  - Purpura [Unknown]

NARRATIVE: CASE EVENT DATE: 201112
